FAERS Safety Report 4625176-2 (Version None)
Quarter: 2005Q2

REPORT INFORMATION
  Report Type: 
  Country: None (occurrence: None)
  Receive Date: 20050325
  Receipt Date: 20050114
  Transmission Date: 20051028
  Serious: No
  Sender: FDA-Public Use
  Company Number: US_0404102592

PATIENT
  Age: 77 Year
  Sex: Female

DRUGS (6)
  1. FORTEO [Suspect]
     Indication: OSTEOPOROSIS
     Dosage: 20 UG/ 1 DAY
     Dates: start: 20031101
  2. ASPIRIN [Concomitant]
  3. LEVOXYL [Concomitant]
  4. LANOXIN [Concomitant]
  5. CAPTOPRIL [Concomitant]
  6. INSULIN GLARGINE [Concomitant]

REACTIONS (4)
  - ALOPECIA [None]
  - MUSCLE SPASMS [None]
  - MYALGIA [None]
  - PAIN IN EXTREMITY [None]
